FAERS Safety Report 23184678 (Version 1)
Quarter: 2023Q4

REPORT INFORMATION
  Report Type: Report from Study
  Country: US (occurrence: US)
  Receive Date: 20231115
  Receipt Date: 20231115
  Transmission Date: 20240109
  Serious: Yes (Hospitalization)
  Sender: FDA-Public Use
  Company Number: US-Clinigen Group PLC/ Clinigen Healthcare Ltd-US-CLGN-23-00168

PATIENT

DRUGS (8)
  1. PROLEUKIN [Suspect]
     Active Substance: ALDESLEUKIN
     Indication: Non-small cell lung cancer
     Dosage: TWO DOSES
     Route: 042
     Dates: start: 20230327, end: 20230328
  2. LIFILEUCEL [Suspect]
     Active Substance: LIFILEUCEL
     Indication: Non-small cell lung cancer
     Dosage: UNK UNK, QD
     Route: 042
     Dates: start: 20230327, end: 20230327
  3. CYCLOPHOSPHAMIDE [Suspect]
     Active Substance: CYCLOPHOSPHAMIDE
     Indication: Non-small cell lung cancer
     Dosage: 60 MILLIGRAM/KILOGRAM, QD
     Route: 042
     Dates: start: 20230322, end: 20230323
  4. FLUDARABINE [Suspect]
     Active Substance: FLUDARABINE PHOSPHATE
     Indication: Non-small cell lung cancer
     Dosage: 25 MILLIGRAM/SQ. METER, QD
     Route: 042
     Dates: start: 20230322, end: 20230326
  5. MESNA [Suspect]
     Active Substance: MESNA
     Indication: Non-small cell lung cancer
     Dosage: UNK UNK, QD
     Route: 042
     Dates: start: 20230322, end: 20230323
  6. ELIQUIS [Concomitant]
     Active Substance: APIXABAN
     Indication: Atrial flutter
     Dosage: HELD IN ORDER TO GET LINE PLACED
     Dates: end: 20230321
  7. BISOPROLOL [Concomitant]
     Active Substance: BISOPROLOL\BISOPROLOL FUMARATE
     Indication: Atrial flutter
     Dosage: SELF-STOPPED DURING BRIDGING THERAPY DUE TO LOW BLOOD PRESSURE, 70^S OVER 50^S
  8. BISOPROLOL [Concomitant]
     Active Substance: BISOPROLOL\BISOPROLOL FUMARATE
     Dosage: RESTARTED AFTER CARDIOLOGY CONSULT
     Dates: start: 20230327

REACTIONS (4)
  - Atrial flutter [Recovered/Resolved]
  - Vasculitis [Recovered/Resolved]
  - Sinus tachycardia [Recovered/Resolved]
  - Pleural effusion [Recovering/Resolving]

NARRATIVE: CASE EVENT DATE: 20230324
